FAERS Safety Report 5294279-4 (Version None)
Quarter: 2007Q2

REPORT INFORMATION
  Report Type: 
  Country: None (occurrence: None)
  Receive Date: 20070412
  Receipt Date: 20070330
  Transmission Date: 20071010
  Serious: Yes (Disabling)
  Sender: FDA-Public Use
  Company Number: PHBS2007CH05752

PATIENT
  Age: 69 Year
  Sex: Male

DRUGS (1)
  1. AREDIA [Suspect]
     Dosage: 30 MG, QMO
     Dates: start: 20000101, end: 20050101

REACTIONS (5)
  - DENTAL TREATMENT [None]
  - INFECTION [None]
  - OSTEONECROSIS [None]
  - TOOTH EXTRACTION [None]
  - TOOTHACHE [None]
